FAERS Safety Report 4434847-2 (Version None)
Quarter: 2004Q3

REPORT INFORMATION
  Report Type: 
  Country: None (occurrence: None)
  Receive Date: 20040726
  Receipt Date: 20040505
  Transmission Date: 20050211
  Serious: No
  Sender: FDA-Public Use
  Company Number: USA040566790

PATIENT
  Age: 62 Year
  Sex: Female

DRUGS (5)
  1. FORTEO [Suspect]
     Indication: OSTEOPOROSIS
     Dates: start: 20040405
  2. ALEVE [Concomitant]
  3. TYLENOL [Concomitant]
  4. CENTRUM [Concomitant]
  5. VITAMIN D [Concomitant]

REACTIONS (3)
  - FEELING HOT [None]
  - NAUSEA [None]
  - VOMITING [None]
